FAERS Safety Report 16913613 (Version 1)
Quarter: 2019Q4

REPORT INFORMATION
  Report Type: Spontaneous
  Country: CN (occurrence: CN)
  Receive Date: 20191014
  Receipt Date: 20191014
  Transmission Date: 20200122
  Serious: Yes (Other)
  Sender: FDA-Public Use
  Company Number: CN-BAYER-2019-183206

PATIENT
  Age: 69 Year
  Sex: Female

DRUGS (1)
  1. IOPROMIDE. [Suspect]
     Active Substance: IOPROMIDE
     Indication: AORTOGRAM
     Dosage: 200 ML, ONCE
     Route: 013
     Dates: start: 20190713, end: 20190713

REACTIONS (3)
  - Slow response to stimuli [Recovering/Resolving]
  - Contrast encephalopathy [Recovering/Resolving]
  - Pupillary light reflex tests abnormal [Recovering/Resolving]

NARRATIVE: CASE EVENT DATE: 20190713
